FAERS Safety Report 8560524-2 (Version None)
Quarter: 2012Q3

REPORT INFORMATION
  Report Type: 
  Country: None (occurrence: None)
  Receive Date: 20120802
  Receipt Date: 20120801
  Transmission Date: 20120928
  Serious: Yes (Other)
  Sender: FDA-Public Use
  Company Number: BR-PFIZER INC-2012186989

PATIENT
  Sex: Female

DRUGS (1)
  1. TALIGLUCERASE ALFA [Suspect]

REACTIONS (1)
  - ABORTION SPONTANEOUS [None]
